FAERS Safety Report 24544705 (Version 2)
Quarter: 2024Q4

REPORT INFORMATION
  Report Type: Spontaneous
  Country: US (occurrence: US)
  Receive Date: 20241024
  Receipt Date: 20241127
  Transmission Date: 20250114
  Serious: No
  Sender: MYLAN
  Company Number: US-MYLANLABS-2024M1093742

PATIENT
  Age: 45 Year
  Sex: Female
  Weight: 90.9 kg

DRUGS (2)
  1. WIXELA INHUB [Suspect]
     Active Substance: FLUTICASONE PROPIONATE\SALMETEROL XINAFOATE
     Indication: Asthma
     Dosage: 250/50 MICROGRAM, BID (TWICE DAILY)
     Route: 055
     Dates: start: 202212, end: 202407
  2. ACETAMINOPHEN [Concomitant]
     Active Substance: ACETAMINOPHEN
     Dosage: UNK
     Route: 065

REACTIONS (10)
  - Asthma [Recovering/Resolving]
  - Fatigue [Unknown]
  - Oropharyngeal discomfort [Unknown]
  - COVID-19 [Unknown]
  - Dysphonia [Unknown]
  - Oropharyngeal pain [Recovering/Resolving]
  - Cough [Recovering/Resolving]
  - Product substitution issue [Unknown]
  - Therapeutic product effect incomplete [Unknown]
  - Device breakage [Unknown]

NARRATIVE: CASE EVENT DATE: 20230101
